FAERS Safety Report 23377109 (Version 1)
Quarter: 2024Q1

REPORT INFORMATION
  Report Type: Spontaneous
  Country: IT (occurrence: IT)
  Receive Date: 20240108
  Receipt Date: 20240108
  Transmission Date: 20240409
  Serious: Yes (Hospitalization, Other)
  Sender: FDA-Public Use
  Company Number: None

PATIENT
  Age: 36 Year
  Sex: Male

DRUGS (8)
  1. CHORIONIC GONADOTROPHIN [Suspect]
     Active Substance: CHORIOGONADOTROPIN ALFA
     Indication: Muscle building therapy
     Dosage: UNK
     Route: 065
  2. INSULIN HUMAN [Suspect]
     Active Substance: INSULIN HUMAN
     Indication: Muscle building therapy
     Dosage: 5 IU, QD
     Route: 065
  3. NANDROLONE [Suspect]
     Active Substance: NANDROLONE
     Indication: Muscle building therapy
     Dosage: UNK
     Route: 065
  4. RETINOL [Suspect]
     Active Substance: RETINOL
     Indication: Muscle building therapy
     Dosage: 40000 IU, QD 400 % D.V
     Route: 065
  5. SOMATROPIN [Suspect]
     Active Substance: SOMATROPIN
     Indication: Muscle building therapy
     Dosage: 4.8 IU, QD
     Route: 065
  6. TESTOSTERONE [Suspect]
     Active Substance: TESTOSTERONE
     Indication: Muscle building therapy
     Route: 065
  7. TESTOSTERONE PROPIONATE [Suspect]
     Active Substance: TESTOSTERONE PROPIONATE
     Indication: Muscle building therapy
     Dosage: 2-3 PER WEEK
     Route: 065
  8. TRENBOLONE [Suspect]
     Active Substance: TRENBOLONE
     Indication: Muscle building therapy
     Dosage: 2 UNK, QW
     Route: 065

REACTIONS (5)
  - Headache [Unknown]
  - Intracranial pressure increased [Unknown]
  - Vision blurred [Unknown]
  - Papilloedema [Unknown]
  - Drug abuse [Unknown]
